FAERS Safety Report 22249062 (Version 1)
Quarter: 2023Q2

REPORT INFORMATION
  Report Type: Spontaneous
  Country: IT (occurrence: None)
  Receive Date: 20230425
  Receipt Date: 20230425
  Transmission Date: 20230721
  Serious: Yes (Other)
  Sender: FDA-Public Use
  Company Number: 2023A091084

PATIENT
  Sex: Female

DRUGS (1)
  1. TAGRISSO [Suspect]
     Active Substance: OSIMERTINIB
     Indication: Lung neoplasm malignant
     Dosage: UNKNOWN
     Route: 048

REACTIONS (5)
  - Malignant neoplasm progression [Unknown]
  - Interstitial lung disease [Unknown]
  - COVID-19 [Unknown]
  - Drug resistance [Unknown]
  - Off label use [Unknown]
